FAERS Safety Report 5282156-4 (Version None)
Quarter: 2007Q1

REPORT INFORMATION
  Report Type: 
  Country: None (occurrence: None)
  Receive Date: 20070330
  Receipt Date: 20070319
  Transmission Date: 20070707
  Serious: Yes (Hospitalization, Other)
  Sender: FDA-Public Use
  Company Number: FR-PFIZER INC-2006152928

PATIENT
  Sex: Male
  Weight: 80 kg

DRUGS (5)
  1. LYRICA [Suspect]
     Indication: PAIN
     Route: 048
  2. LYRICA [Suspect]
     Indication: BACK PAIN
  3. LORMETAZEPAM [Concomitant]
  4. ACETAMINOPHEN [Concomitant]
  5. ALIMEMAZINE TARTRATE [Concomitant]

REACTIONS (6)
  - 5'NUCLEOTIDASE INCREASED [None]
  - BILE DUCT STONE [None]
  - BLOOD ALKALINE PHOSPHATASE INCREASED [None]
  - CHOLECYSTITIS ACUTE [None]
  - CHOLESTASIS [None]
  - CYTOLYTIC HEPATITIS [None]
